FAERS Safety Report 18336998 (Version 7)
Quarter: 2021Q1

REPORT INFORMATION
  Report Type: Spontaneous
  Country: CA (occurrence: CA)
  Receive Date: 20201002
  Receipt Date: 20210323
  Transmission Date: 20210419
  Serious: Yes (Death, Hospitalization, Other)
  Sender: FDA-Public Use
  Company Number: CA-PFIZER INC-2020289000

PATIENT
  Age: 62 Year
  Sex: Female

DRUGS (3)
  1. FULVESTRANT. [Concomitant]
     Active Substance: FULVESTRANT
     Dosage: UNK
  2. IBRANCE [Suspect]
     Active Substance: PALBOCICLIB
     Dosage: 125 MG, CYCLIC (X21DAYS WITH 7DAYS OFF)
     Dates: start: 20200722, end: 2020
  3. FASLODEX [Concomitant]
     Active Substance: FULVESTRANT
     Dosage: UNK UNK, EVERY 3 WEEKS

REACTIONS (3)
  - Death [Fatal]
  - Hip fracture [Recovering/Resolving]
  - Nausea [Unknown]

NARRATIVE: CASE EVENT DATE: 2020
